FAERS Safety Report 6877136-9 (Version None)
Quarter: 2010Q3

REPORT INFORMATION
  Report Type: 
  Country: None (occurrence: None)
  Receive Date: 20100727
  Receipt Date: 20100720
  Transmission Date: 20110219
  Serious: Yes (Other)
  Sender: FDA-Public Use
  Company Number: US-ROCHE-714319

PATIENT
  Sex: Male
  Weight: 61.2 kg

DRUGS (14)
  1. TOCILIZUMAB [Suspect]
     Indication: RHEUMATOID ARTHRITIS
     Dosage: FORM: INFUSION.LAST DOSE PRIOR TO SAE:30 JUNE 2010
     Route: 042
     Dates: start: 20060216
  2. TOCILIZUMAB [Suspect]
     Dosage: DOSE: 8 MG/KG
     Route: 042
     Dates: start: 20100409
  3. TOCILIZUMAB [Suspect]
     Dosage: DOSE: 8 MG/KG
     Route: 042
     Dates: start: 20100505
  4. TOCILIZUMAB [Suspect]
     Dosage: DOSE: 8 MG/KG
     Route: 042
     Dates: start: 20100602
  5. TOCILIZUMAB [Suspect]
     Dosage: DOSE: 8 MG/KG
     Route: 042
     Dates: start: 20100630
  6. TOCILIZUMAB [Suspect]
     Dosage: FORM:INFUSION.PATIENT WAS ENROLLED IN STUDY WA18063
     Route: 042
  7. METHOTREXATE [Concomitant]
     Dates: start: 20060125
  8. METHOTREXATE [Concomitant]
     Dosage: STRENGTH: 25 MG/ML. FORM: VIAL INJ.
     Dates: start: 20100408
  9. METHOTREXATE [Concomitant]
     Dosage: ROUTE: ORAL
  10. FOLIC ACID [Concomitant]
     Route: 048
     Dates: start: 20060125
  11. FOLIC ACID [Concomitant]
     Route: 048
     Dates: start: 20091022
  12. DICLOFENAC SODIUM [Concomitant]
     Indication: ARTHRITIS
     Route: 048
     Dates: start: 20060510
  13. DICLOFENAC SODIUM [Concomitant]
     Dosage: AS NEEDED. TAKES RARELY.
     Route: 048
     Dates: start: 20100113
  14. PANCREATIN [Concomitant]
     Dosage: DRUG: PANCREATIN ENZYME OTC
     Dates: start: 20090114

REACTIONS (1)
  - LUNG NEOPLASM [None]
